FAERS Safety Report 21781067 (Version 1)
Quarter: 2022Q4

REPORT INFORMATION
  Report Type: Report from Study
  Country: US (occurrence: US)
  Receive Date: 20221227
  Receipt Date: 20221227
  Transmission Date: 20230113
  Serious: No
  Sender: FDA-Public Use
  Company Number: US-ABBVIE-4211781

PATIENT

DRUGS (4)
  1. HUMIRA [Suspect]
     Active Substance: ADALIMUMAB
     Indication: Ankylosing spondylitis
     Route: 058
  2. METHOTREXATE [Concomitant]
     Active Substance: METHOTREXATE
     Indication: Product used for unknown indication
  3. MODERNA COVID-19 VACCINE [Concomitant]
     Active Substance: ELASOMERAN
     Indication: COVID-19 immunisation
     Dosage: ONE IN ONCE FREQUENCY
     Route: 030
  4. MODERNA COVID-19 VACCINE [Concomitant]
     Active Substance: ELASOMERAN
     Indication: COVID-19 immunisation
     Dosage: ONE IN ONCE FREQUENCY ?BOOSTER DOSE
     Route: 030

REACTIONS (11)
  - Drug ineffective [Unknown]
  - Renal disorder [Unknown]
  - Tooth fracture [Unknown]
  - Infection [Unknown]
  - Bedridden [Unknown]
  - Abscess [Unknown]
  - Crying [Unknown]
  - Papule [Unknown]
  - COVID-19 [Unknown]
  - Immobile [Unknown]
  - Toothache [Unknown]
